FAERS Safety Report 7490702-5 (Version None)
Quarter: 2011Q2

REPORT INFORMATION
  Report Type: 
  Country: None (occurrence: None)
  Receive Date: 20110519
  Receipt Date: 20110512
  Transmission Date: 20111010
  Serious: Yes (Hospitalization)
  Sender: FDA-Public Use
  Company Number: FR-SANOFI-AVENTIS-2011SA018355

PATIENT
  Age: 64 Year
  Sex: Male

DRUGS (8)
  1. PREVISCAN [Concomitant]
  2. DIFFU K [Concomitant]
  3. CORDARONE [Suspect]
     Indication: ATRIAL FIBRILLATION
     Route: 048
     Dates: end: 20110119
  4. ZESTRIL [Concomitant]
  5. LEVOTHYROXINE SODIUM [Concomitant]
  6. BISOPROLOL FUMARATE [Concomitant]
  7. FUROSEMIDE [Concomitant]
  8. MULTAQ [Suspect]
     Indication: ATRIAL FIBRILLATION
     Route: 048
     Dates: start: 20110119, end: 20110222

REACTIONS (13)
  - ATRIAL FIBRILLATION [None]
  - DILATATION VENTRICULAR [None]
  - PULMONARY ARTERIAL HYPERTENSION [None]
  - MITRAL VALVE STENOSIS [None]
  - RESPIRATORY FAILURE [None]
  - BRONCHIECTASIS [None]
  - HYPOTHYROIDISM [None]
  - AORTIC DISORDER [None]
  - TRICUSPID VALVE INCOMPETENCE [None]
  - CARDIAC FAILURE [None]
  - DISEASE RECURRENCE [None]
  - INTERSTITIAL LUNG DISEASE [None]
  - HYPERGLYCAEMIA [None]
